FAERS Safety Report 6051301-5 (Version None)
Quarter: 2009Q1

REPORT INFORMATION
  Report Type: 
  Country: None (occurrence: None)
  Receive Date: 20090121
  Receipt Date: 20090121
  Transmission Date: 20090719
  Serious: Yes (Disabling)
  Sender: FDA-Public Use
  Company Number: None

PATIENT
  Age: 35 Year
  Sex: Female
  Weight: 70.3075 kg

DRUGS (2)
  1. CIPROFLOXACIN [Suspect]
     Indication: URINARY TRACT INFECTION
     Dosage: 250MG 3 DAYS PO
     Route: 048
     Dates: start: 20081104, end: 20081107
  2. CIPROFLOXACIN [Suspect]
     Indication: URINARY TRACT INFECTION
     Dosage: 500MG  7 DAYS PO
     Route: 048
     Dates: start: 20081111, end: 20081118

REACTIONS (3)
  - ABASIA [None]
  - PAIN IN EXTREMITY [None]
  - TENDONITIS [None]
